FAERS Safety Report 5489499-X (Version None)
Quarter: 2007Q4

REPORT INFORMATION
  Report Type: 
  Country: None (occurrence: None)
  Receive Date: 20071016
  Receipt Date: 20071016
  Transmission Date: 20080405
  Serious: Yes (Hospitalization, Other)
  Sender: FDA-Public Use
  Company Number: None

PATIENT
  Age: 20 Year
  Sex: Female
  Weight: 65.8 kg

DRUGS (11)
  1. SIROLIMUS 1MG WYETH [Suspect]
     Indication: HEART TRANSPLANT
     Dosage: 3MG DAILY PO
     Route: 048
  2. SIROLIMUS 1MG WYETH [Suspect]
     Indication: IMMUNOSUPPRESSION
     Dosage: 3MG DAILY PO
     Route: 048
  3. PRAVASTATIN [Concomitant]
  4. PREDNISONE [Concomitant]
  5. HYDRALAZINE HCL [Concomitant]
  6. MYCOPHENOLATE MOFETIL [Concomitant]
  7. METOCLOPRAMIDE [Concomitant]
  8. PROMETHAZINE [Concomitant]
  9. ATENOLOL [Concomitant]
  10. ESOMEPRAZOLE [Concomitant]
  11. FUROSEMIDE [Concomitant]

REACTIONS (4)
  - ASCITES [None]
  - COLITIS [None]
  - GASTRITIS EROSIVE [None]
  - PANCREATITIS [None]
